FAERS Safety Report 9825819 (Version 3)
Quarter: 2014Q1

REPORT INFORMATION
  Report Type: Spontaneous
  Country: FR (occurrence: FR)
  Receive Date: 20140117
  Receipt Date: 20140205
  Transmission Date: 20141002
  Serious: Yes (Hospitalization)
  Sender: FDA-Public Use
  Company Number: FR-UCBSA-108303

PATIENT
  Age: 92 Year
  Sex: Female

DRUGS (11)
  1. KEPPRA [Suspect]
     Indication: CONVULSION
     Route: 048
     Dates: start: 20131114, end: 20131212
  2. PLAVIX [Suspect]
     Dosage: UNKNOWN FREQUENCY
     Route: 048
     Dates: start: 20131117, end: 20131212
  3. RISPERDAL [Suspect]
     Route: 048
     Dates: end: 20131212
  4. AUGMENTIN [Suspect]
     Indication: LUNG DISORDER
     Route: 048
     Dates: start: 20131114, end: 20131122
  5. SPECIAFOLDINE [Concomitant]
     Indication: FOLATE DEFICIENCY
     Dosage: UNKNOWN FREQUENCY
     Route: 048
     Dates: start: 20131116, end: 20131212
  6. AMLOR [Concomitant]
     Dosage: UNKNOWN FREQUENCY
     Route: 048
  7. PARACETAMOL EG [Concomitant]
     Dosage: UNKNOWN DOSE
     Route: 048
     Dates: end: 20131212
  8. MOPRAL [Concomitant]
     Dosage: UNKNOWN FREQUENC
     Route: 048
  9. TRANSIPEG [Concomitant]
     Dosage: UNKNOWN DOSE
     Route: 048
  10. PRAVASTATINE [Concomitant]
     Dosage: 20 MG DOSE
     Dates: end: 20131116
  11. FUNGIZONE [Concomitant]
     Dosage: UNKNOWN DOSE
     Dates: end: 20131206

REACTIONS (3)
  - Cholestasis [Not Recovered/Not Resolved]
  - Jaundice [Not Recovered/Not Resolved]
  - Drug-induced liver injury [Unknown]
